FAERS Safety Report 11803670 (Version 2)
Quarter: 2016Q2

REPORT INFORMATION
  Report Type: Spontaneous
  Country: US (occurrence: US)
  Receive Date: 20151204
  Receipt Date: 20160401
  Transmission Date: 20160815
  Serious: No
  Sender: FDA-Public Use
  Company Number: US-CELGENEUS-USA-2015117994

PATIENT
  Age: 50 Year
  Sex: Male

DRUGS (1)
  1. OTEZLA [Suspect]
     Active Substance: APREMILAST
     Indication: PSORIASIS
     Dosage: 60 MILLIGRAM
     Route: 048
     Dates: start: 20150701, end: 201510

REACTIONS (4)
  - Abdominal pain upper [Recovered/Resolved]
  - Sleep disorder [Unknown]
  - Cough [Recovered/Resolved]
  - Appetite disorder [Unknown]

NARRATIVE: CASE EVENT DATE: 20151026
